FAERS Safety Report 16231339 (Version 1)
Quarter: 2019Q2

REPORT INFORMATION
  Report Type: Report from Study
  Country: None (occurrence: US)
  Receive Date: 20190424
  Receipt Date: 20190424
  Transmission Date: 20190711
  Serious: Yes (Hospitalization)
  Sender: FDA-Public Use
  Company Number: US-ABBVIE-19K-163-2751285-00

PATIENT
  Sex: Female

DRUGS (2)
  1. HUMIRA [Suspect]
     Active Substance: ADALIMUMAB
     Route: 058
     Dates: start: 20190304
  2. HUMIRA [Suspect]
     Active Substance: ADALIMUMAB
     Indication: CROHN^S DISEASE
     Route: 058

REACTIONS (18)
  - Loss of personal independence in daily activities [Unknown]
  - Arthralgia [Unknown]
  - Depressed mood [Unknown]
  - Pharyngeal swelling [Unknown]
  - Pyrexia [Unknown]
  - Anal fistula [Unknown]
  - Nausea [Unknown]
  - Malaise [Unknown]
  - Paraesthesia [Unknown]
  - Intentional product misuse [Unknown]
  - Post procedural complication [Unknown]
  - Abdominal distension [Unknown]
  - Abscess limb [Unknown]
  - Constipation [Unknown]
  - Fear [Unknown]
  - Visual impairment [Unknown]
  - Hypoaesthesia [Unknown]
  - Rash [Unknown]

NARRATIVE: CASE EVENT DATE: 2019
